FAERS Safety Report 7550926-5 (Version None)
Quarter: 2011Q2

REPORT INFORMATION
  Report Type: 
  Country: None (occurrence: None)
  Receive Date: 20110616
  Receipt Date: 20100929
  Transmission Date: 20111010
  Serious: No
  Sender: FDA-Public Use
  Company Number: US-MYLANLABS-2010S1018029

PATIENT
  Age: 51 Year
  Sex: Female

DRUGS (4)
  1. PREDNISONE [Concomitant]
  2. IBUPROFEN [Concomitant]
  3. CYCLOBENZAPRINE HYDROCHLORIDE [Suspect]
     Route: 048
     Dates: start: 20100927, end: 20100927
  4. CYCLOBENZAPRINE HYDROCHLORIDE [Suspect]
     Indication: MUSCLE SPASMS
     Route: 048
     Dates: start: 20100726, end: 20100730

REACTIONS (3)
  - REACTION TO DRUG EXCIPIENTS [None]
  - DYSPEPSIA [None]
  - INSOMNIA [None]
